FAERS Safety Report 7228437-6 (Version None)
Quarter: 2011Q1

REPORT INFORMATION
  Report Type: 
  Country: None (occurrence: None)
  Receive Date: 20110114
  Receipt Date: 20110107
  Transmission Date: 20110831
  Serious: Yes (Hospitalization, Other)
  Sender: FDA-Public Use
  Company Number: US-MERCK-0808USA04594

PATIENT
  Age: 78 Year
  Sex: Female
  Weight: 77 kg

DRUGS (3)
  1. FOSAMAX [Suspect]
     Indication: OSTEOPOROSIS
     Route: 048
     Dates: start: 20041210, end: 20070915
  2. VERAPAMIL [Concomitant]
     Route: 065
     Dates: start: 19900101
  3. FOSAMAX [Suspect]
     Indication: OSTEOPENIA
     Route: 048
     Dates: start: 20041210, end: 20070915

REACTIONS (22)
  - PAIN IN JAW [None]
  - JOINT EFFUSION [None]
  - OSTEOARTHRITIS [None]
  - ANAEMIA [None]
  - HYPERTENSION [None]
  - ORAL DISCHARGE [None]
  - UPPER RESPIRATORY TRACT INFECTION [None]
  - ORAL INFECTION [None]
  - INCORRECT ROUTE OF DRUG ADMINISTRATION [None]
  - HAEMORRHOIDS [None]
  - OSTEONECROSIS OF JAW [None]
  - AORTIC ARTERIOSCLEROSIS [None]
  - SWELLING [None]
  - INTERVERTEBRAL DISC PROTRUSION [None]
  - ARTHROPATHY [None]
  - COLONIC POLYP [None]
  - EXTRASYSTOLES [None]
  - OSTEITIS [None]
  - IMPAIRED HEALING [None]
  - PAIN [None]
  - URINARY TRACT INFECTION [None]
  - RADICULOPATHY [None]
